FAERS Safety Report 6600040-8 (Version None)
Quarter: 2010Q1

REPORT INFORMATION
  Report Type: 
  Country: None (occurrence: None)
  Receive Date: 20100224
  Receipt Date: 20100211
  Transmission Date: 20100710
  Serious: Yes (Other)
  Sender: FDA-Public Use
  Company Number: ES-GILEAD-E2B_00000601

PATIENT
  Age: 32 Year
  Sex: Male
  Weight: 57 kg

DRUGS (1)
  1. ATRIPLA [Suspect]
     Indication: HIV INFECTION
     Route: 048
     Dates: start: 20091111, end: 20091208

REACTIONS (4)
  - HEADACHE [None]
  - PYREXIA [None]
  - RASH GENERALISED [None]
  - VOMITING [None]
